FAERS Safety Report 13050362 (Version 1)
Quarter: 2016Q4

REPORT INFORMATION
  Report Type: Spontaneous
  Country: US (occurrence: US)
  Receive Date: 20161221
  Receipt Date: 20161221
  Transmission Date: 20170207
  Serious: No
  Sender: FDA-Public Use
  Company Number: US-NOVOPROD-498137

PATIENT
  Age: 20 Year
  Sex: Male
  Weight: 54.43 kg

DRUGS (1)
  1. LEVEMIR [Suspect]
     Active Substance: INSULIN DETEMIR
     Indication: PRODUCT USED FOR UNKNOWN INDICATION
     Dosage: 8 U, BID
     Route: 058

REACTIONS (2)
  - Stress [Unknown]
  - Blood glucose increased [Unknown]
